FAERS Safety Report 7701570-8 (Version None)
Quarter: 2011Q3

REPORT INFORMATION
  Report Type: 
  Country: None (occurrence: None)
  Receive Date: 20110817
  Receipt Date: 20110809
  Transmission Date: 20111222
  Serious: Yes (Other)
  Sender: FDA-Public Use
  Company Number: 2010JP004052

PATIENT
  Age: 18 Year
  Sex: Male
  Weight: 53 kg

DRUGS (11)
  1. PROGRAF [Suspect]
     Indication: PROPHYLAXIS AGAINST TRANSPLANT REJECTION
     Dosage: SEE IMAGE
     Route: 042
  2. MEROPENEM [Concomitant]
  3. LANSOPRAZOLE [Suspect]
     Dosage: 15 MG, /D, ORAL
     Route: 048
  4. DOPAMINE HCL [Concomitant]
  5. LANSOPRAZOLE [Suspect]
     Dosage: 60 MG, /D, IV NOS
     Route: 042
  6. VORICONAZOLE [Suspect]
     Dosage: 400 MG, /D, IV NOS
     Route: 042
  7. LENOGRASTIM (LENOGRASTIM) [Concomitant]
  8. CEFEPIME [Concomitant]
  9. ACYCLOVIR [Concomitant]
  10. URSODEOXYCHOLIC ACID (URSODEXYCHOLIC ACID) [Concomitant]
  11. VANCOMYCIN [Concomitant]

REACTIONS (8)
  - LYMPHOMA [None]
  - DIARRHOEA [None]
  - DISEASE RECURRENCE [None]
  - INHIBITORY DRUG INTERACTION [None]
  - DISEASE PROGRESSION [None]
  - DRUG INEFFECTIVE [None]
  - ACUTE GRAFT VERSUS HOST DISEASE [None]
  - DRUG LEVEL DECREASED [None]
